FAERS Safety Report 4352728-X (Version None)
Quarter: 2004Q2

REPORT INFORMATION
  Report Type: 
  Country: None (occurrence: None)
  Receive Date: 20040504
  Receipt Date: 20031029
  Transmission Date: 20050107
  Serious: Yes (Death)
  Sender: FDA-Public Use
  Company Number: US-GLAXOSMITHKLINE-B0313884A

PATIENT
  Age: 15 Year
  Sex: Female

DRUGS (1)
  1. BUPROPION HCL [Suspect]
     Route: 048

REACTIONS (5)
  - CARDIO-RESPIRATORY ARREST [None]
  - CARDIOPULMONARY FAILURE [None]
  - CONVULSION [None]
  - DROWNING [None]
  - DRUG ABUSER [None]
